FAERS Safety Report 23052807 (Version 1)
Quarter: 2023Q4

REPORT INFORMATION
  Report Type: Spontaneous
  Country: PL (occurrence: PL)
  Receive Date: 20231011
  Receipt Date: 20231011
  Transmission Date: 20240109
  Serious: Yes (Hospitalization)
  Sender: FDA-Public Use
  Company Number: PL-AMGEN-POLSP2023176268

PATIENT
  Age: 7 Year
  Sex: Female

DRUGS (2)
  1. ADALIMUMAB [Suspect]
     Active Substance: ADALIMUMAB
     Indication: Pityriasis rubra pilaris
     Dosage: 40 MILLIGRAM, QMO
     Route: 058
  2. ACITRETIN [Concomitant]
     Active Substance: ACITRETIN
     Indication: Pityriasis rubra pilaris
     Dosage: 0.7 MILLIGRAM PER KILOGRAM, QD FOR 6 MONTHS

REACTIONS (6)
  - Skin plaque [Unknown]
  - Skin exfoliation [Unknown]
  - Rash erythematous [Unknown]
  - Therapeutic product effect decreased [Unknown]
  - Blood cholesterol increased [Unknown]
  - Off label use [Unknown]
